FAERS Safety Report 7467283-5 (Version None)
Quarter: 2011Q2

REPORT INFORMATION
  Report Type: 
  Country: None (occurrence: None)
  Receive Date: 20110505
  Receipt Date: 20110505
  Transmission Date: 20111010
  Serious: Yes (Hospitalization)
  Sender: FDA-Public Use
  Company Number: None

PATIENT
  Age: 65 Year
  Sex: Male
  Weight: 82.6 kg

DRUGS (2)
  1. DIPHENHYDRAMINE HCL [Suspect]
     Indication: ANGIOEDEMA
     Dosage: 50 MG QID IV
     Route: 042
     Dates: start: 20100515, end: 20100517
  2. PREDNISONE TAB [Suspect]
     Indication: ANGIOEDEMA
     Dosage: 60 MG EVERY DAY PO
     Route: 048
     Dates: start: 20100516, end: 20100518

REACTIONS (2)
  - CONFUSIONAL STATE [None]
  - DELIRIUM [None]
